FAERS Safety Report 8516582-4 (Version None)
Quarter: 2012Q3

REPORT INFORMATION
  Report Type: 
  Country: None (occurrence: None)
  Receive Date: 20120711
  Receipt Date: 20120711
  Transmission Date: 20120928
  Serious: Yes (Other)
  Sender: FDA-Public Use
  Company Number: None

PATIENT
  Sex: Male

DRUGS (1)
  1. LATANOPROST [Suspect]
     Indication: EYE IRRITATION
     Dosage: AT NIGHT INTRAOCULAR
     Route: 031

REACTIONS (3)
  - FOREIGN BODY IN EYE [None]
  - EYE IRRITATION [None]
  - VISION BLURRED [None]
